FAERS Safety Report 24335904 (Version 1)
Quarter: 2024Q3

REPORT INFORMATION
  Report Type: Report from Study
  Country: US (occurrence: US)
  Receive Date: 20240919
  Receipt Date: 20240919
  Transmission Date: 20241017
  Serious: No
  Sender: ROCHE
  Company Number: US-ROCHE-2975384

PATIENT
  Age: 59 Year
  Sex: Female

DRUGS (2)
  1. TAMIFLU [Suspect]
     Active Substance: OSELTAMIVIR PHOSPHATE
     Indication: Product used for unknown indication
     Route: 065
  2. ALECENSA [Suspect]
     Active Substance: ALECTINIB HYDROCHLORIDE
     Indication: Lung neoplasm malignant
     Route: 048

REACTIONS (7)
  - Drug hypersensitivity [Unknown]
  - Abdominal distension [Unknown]
  - Muscle spasms [Unknown]
  - Constipation [Unknown]
  - Dry eye [Unknown]
  - Eye disorder [Unknown]
  - Eye irritation [Unknown]
